FAERS Safety Report 25951774 (Version 1)
Quarter: 2025Q4

REPORT INFORMATION
  Report Type: Spontaneous
  Country: US (occurrence: US)
  Receive Date: 20251023
  Receipt Date: 20251023
  Transmission Date: 20260118
  Serious: No
  Sender: GLAND PHARMA LTD
  Company Number: US-GLANDPHARMA-US-2025GLNSPO01890

PATIENT
  Sex: Male

DRUGS (1)
  1. VANCOMYCIN HYDROCHLORIDE [Suspect]
     Active Substance: VANCOMYCIN HYDROCHLORIDE
     Indication: Infection
     Dosage: DOSE ADJUSTED FROM 1500 TO 750
     Route: 065
     Dates: start: 202508

REACTIONS (1)
  - Drug level above therapeutic [Unknown]

NARRATIVE: CASE EVENT DATE: 20250801
